FAERS Safety Report 5805992-1 (Version None)
Quarter: 2008Q3

REPORT INFORMATION
  Report Type: 
  Country: None (occurrence: None)
  Receive Date: 20080710
  Receipt Date: 20080704
  Transmission Date: 20090109
  Serious: Yes (Other)
  Sender: FDA-Public Use
  Company Number: B0525108A

PATIENT
  Age: 11 Year
  Sex: Male

DRUGS (1)
  1. ZOVIRAX [Suspect]
     Route: 042
     Dates: start: 20080520, end: 20080521

REACTIONS (4)
  - BLOOD CREATININE INCREASED [None]
  - INCORRECT DRUG DOSAGE FORM ADMINISTERED [None]
  - INJECTION SITE EXTRAVASATION [None]
  - INJECTION SITE VESICLES [None]
